FAERS Safety Report 9244885 (Version 2)
Quarter: 2013Q2

REPORT INFORMATION
  Report Type: Spontaneous
  Country: SA (occurrence: SA)
  Receive Date: 20130422
  Receipt Date: 20130530
  Transmission Date: 20140414
  Serious: Yes (Hospitalization, Other)
  Sender: FDA-Public Use
  Company Number: SA-PFIZER INC-2013125311

PATIENT
  Age: 50 Year
  Sex: Male

DRUGS (1)
  1. CELEBREX [Suspect]
     Indication: BACK PAIN
     Dosage: 200 MG, 1X/DAY

REACTIONS (2)
  - Cerebrovascular accident [Recovered/Resolved]
  - Lateral medullary syndrome [Recovered/Resolved]
